FAERS Safety Report 8622935-6 (Version None)
Quarter: 2012Q3

REPORT INFORMATION
  Report Type: 
  Country: None (occurrence: None)
  Receive Date: 20120827
  Receipt Date: 20120822
  Transmission Date: 20120928
  Serious: Yes (Other)
  Sender: FDA-Public Use
  Company Number: PHHY2012DZ070929

PATIENT
  Sex: Male

DRUGS (5)
  1. METHYLENE BLUE [Concomitant]
  2. EXJADE [Suspect]
     Indication: THALASSAEMIA BETA
     Dosage: 30 MG/KG, PER DAY
     Route: 048
     Dates: start: 20101129
  3. EXJADE [Suspect]
     Dosage: 20 MG/KG/DAY
     Route: 048
     Dates: end: 20120812
  4. OMEPRAZOLE [Concomitant]
     Dosage: 20 MG, UNK
  5. AMPHOTERICIN B [Concomitant]

REACTIONS (5)
  - NUTRITIONAL CONDITION ABNORMAL [None]
  - DYSPEPSIA [None]
  - PLATELET COUNT INCREASED [None]
  - MUCOSAL INFLAMMATION [None]
  - GASTROINTESTINAL HAEMORRHAGE [None]
